FAERS Safety Report 8376408-9 (Version None)
Quarter: 2012Q2

REPORT INFORMATION
  Report Type: 
  Country: None (occurrence: None)
  Receive Date: 20120522
  Receipt Date: 20120517
  Transmission Date: 20120825
  Serious: Yes (Other)
  Sender: FDA-Public Use
  Company Number: PHEH2012US010339

PATIENT
  Sex: Female

DRUGS (5)
  1. VITAMINS NOS [Concomitant]
     Dosage: UNK UKN, UNK
  2. DIOVAN [Suspect]
     Dosage: 160 MG, UNK
  3. NORCO [Concomitant]
     Dosage: UNK UKN, UNK
  4. FUROSEMIDE [Concomitant]
     Dosage: UNK UKN, UNK
  5. CALCIUM [Concomitant]
     Dosage: UNK UKN, UNK

REACTIONS (2)
  - FALL [None]
  - ANKLE FRACTURE [None]
